FAERS Safety Report 19050824 (Version 1)
Quarter: 2021Q1

REPORT INFORMATION
  Report Type: Spontaneous
  Country: CA (occurrence: CA)
  Receive Date: 20210323
  Receipt Date: 20210323
  Transmission Date: 20210420
  Serious: Yes (Other)
  Sender: FDA-Public Use
  Company Number: CA-JNJFOC-20210338967

PATIENT
  Age: 23 Year
  Sex: Female
  Weight: 56 kg

DRUGS (2)
  1. INFLIXIMAB, RECOMBINANT [Suspect]
     Active Substance: INFLIXIMAB
     Indication: ANKYLOSING SPONDYLITIS
     Route: 042
  2. FLURBIPROFEN. [Concomitant]
     Active Substance: FLURBIPROFEN

REACTIONS (2)
  - Weight increased [Unknown]
  - Off label use [Unknown]
